FAERS Safety Report 5032951-1 (Version None)
Quarter: 2006Q2

REPORT INFORMATION
  Report Type: 
  Country: None (occurrence: None)
  Receive Date: 20060622
  Receipt Date: 20060613
  Transmission Date: 20061013
  Serious: Yes (Hospitalization)
  Sender: FDA-Public Use
  Company Number: FR-JNJFOC-20060603189

PATIENT
  Age: 48 Year
  Sex: Male

DRUGS (4)
  1. RISPERDAL CONSTA [Suspect]
     Indication: SCHIZOTYPAL PERSONALITY DISORDER
     Route: 030
  2. LEPTICUR [Concomitant]
  3. STILNOX [Concomitant]
  4. TERCIAN [Concomitant]
     Indication: PSYCHOTIC DISORDER

REACTIONS (2)
  - HYPONATRAEMIA [None]
  - POLYDIPSIA [None]
